FAERS Safety Report 4285485-6 (Version None)
Quarter: 2004Q1

REPORT INFORMATION
  Report Type: 
  Country: None (occurrence: None)
  Receive Date: 20040202
  Receipt Date: 20040117
  Transmission Date: 20041129
  Serious: Yes (Hospitalization, Other)
  Sender: FDA-Public Use
  Company Number: 701409

PATIENT
  Age: 45 Year
  Sex: Male
  Weight: 78.6 kg

DRUGS (7)
  1. AMEVIVE [Suspect]
     Indication: PSORIASIS
     Dosage: 15 MG QW IM
     Route: 030
     Dates: start: 20030415, end: 20030710
  2. FLOVENT [Concomitant]
  3. SEREVENT [Concomitant]
  4. FLONASE [Concomitant]
  5. TRICOR [Concomitant]
  6. ALBUTEROL [Concomitant]
  7. ADVAIR DISKUS 100/50 [Concomitant]

REACTIONS (14)
  - ABDOMINAL PAIN [None]
  - ANAEMIA [None]
  - BASOPHILIA [None]
  - CD4 LYMPHOCYTES DECREASED [None]
  - CHEST PAIN [None]
  - CHROMOSOME ANALYSIS ABNORMAL [None]
  - CHRONIC MYELOID LEUKAEMIA [None]
  - DRUG INEFFECTIVE [None]
  - DYSPNOEA [None]
  - LABORATORY TEST ABNORMAL [None]
  - LEUKOSTASIS [None]
  - PLEURAL EFFUSION [None]
  - SPLENOMEGALY [None]
  - THROMBOCYTHAEMIA [None]
